FAERS Safety Report 10414153 (Version 1)
Quarter: 2014Q3

REPORT INFORMATION
  Report Type: Spontaneous
  Country: US (occurrence: None)
  Receive Date: 20140826
  Receipt Date: 20140826
  Transmission Date: 20150326
  Serious: Yes (Hospitalization)
  Sender: FDA-Public Use
  Company Number: AUR-APL-2014-08920

PATIENT
  Age: 63 Year

DRUGS (9)
  1. CLOPIDOGREL [Concomitant]
     Active Substance: CLOPIDOGREL BISULFATE
  2. FUROSEMIDE (FUROSEMIDE) [Concomitant]
     Active Substance: FUROSEMIDE
  3. SIMVASTATIN (SIMVASTATIN) [Concomitant]
     Active Substance: SIMVASTATIN
  4. TRAMADOL (TRAMADOL) [Concomitant]
     Active Substance: TRAMADOL
  5. LAMSOPRAZOLE (LANSOPRAZOLE [Concomitant]
  6. SALBUTAMOL (SALBUTAMOL) [Concomitant]
     Active Substance: ALBUTEROL
  7. BISOPROLOL 1.25 MG (BISOPROLOL) UNKNOWN, 1.25 MG [Suspect]
     Active Substance: BISOPROLOL
     Indication: PRODUCT USED FOR UNKNOWN INDICATION
  8. SERETIDE [Concomitant]
     Active Substance: FLUTICASONE FUROATE\SALMETEROL XINAFOATE
  9. TIOTROPIUM (TIOTROPIUM) [Concomitant]

REACTIONS (4)
  - Dyspnoea [None]
  - Renal failure acute [None]
  - Hypophagia [None]
  - Hypotension [None]
